FAERS Safety Report 5207834-4 (Version None)
Quarter: 2007Q1

REPORT INFORMATION
  Report Type: 
  Country: None (occurrence: None)
  Receive Date: 20070112
  Receipt Date: 20070103
  Transmission Date: 20070707
  Serious: Yes (Other)
  Sender: FDA-Public Use
  Company Number: US-PFIZER INC-2007001594

PATIENT
  Age: 24 Year
  Sex: Male

DRUGS (5)
  1. GEODON [Suspect]
  2. WELLBUTRIN [Concomitant]
  3. EFFEXOR XR [Concomitant]
  4. KLONOPIN [Concomitant]
  5. ADVIL [Concomitant]

REACTIONS (1)
  - COMPARTMENT SYNDROME [None]
